FAERS Safety Report 7154051-7 (Version None)
Quarter: 2010Q4

REPORT INFORMATION
  Report Type: 
  Country: None (occurrence: None)
  Receive Date: 20101213
  Receipt Date: 20101130
  Transmission Date: 20110411
  Serious: Yes (Other)
  Sender: FDA-Public Use
  Company Number: PHHY2010US80061

PATIENT
  Sex: Female
  Weight: 121 kg

DRUGS (2)
  1. FEMARA [Suspect]
     Dosage: 2.5 MG, QD
     Route: 048
     Dates: start: 20091001, end: 20101101
  2. CHEMOTHERAPEUTICS NOS [Concomitant]

REACTIONS (1)
  - NEOPLASM [None]
